FAERS Safety Report 8563955-X (Version None)
Quarter: 2012Q3

REPORT INFORMATION
  Report Type: 
  Country: None (occurrence: None)
  Receive Date: 20120803
  Receipt Date: 20120727
  Transmission Date: 20120928
  Serious: Yes (Disabling, Other)
  Sender: FDA-Public Use
  Company Number: PHEH2011US011029

PATIENT
  Sex: Male

DRUGS (6)
  1. SYNTHROID [Concomitant]
  2. FLONASE [Concomitant]
  3. ZOLOFT [Concomitant]
  4. THALIDOMIDE [Concomitant]
  5. AREDIA [Suspect]
     Indication: NEOPLASM MALIGNANT
     Dates: end: 20081001
  6. ZOMETA [Suspect]
     Indication: MULTIPLE MYELOMA

REACTIONS (51)
  - DEFORMITY [None]
  - SKIN PAPILLOMA [None]
  - ANHEDONIA [None]
  - PERIODONTAL DISEASE [None]
  - SCOLIOSIS [None]
  - EXPOSED BONE IN JAW [None]
  - KYPHOSIS [None]
  - LACTOSE INTOLERANCE [None]
  - HYPERTENSION [None]
  - DYSPEPSIA [None]
  - PYREXIA [None]
  - PAIN [None]
  - FATIGUE [None]
  - DRY SKIN [None]
  - CONSTIPATION [None]
  - ARTERIOSCLEROSIS CORONARY ARTERY [None]
  - BENIGN NEOPLASM OF ADRENAL GLAND [None]
  - OSTEOPENIA [None]
  - INTERSTITIAL LUNG DISEASE [None]
  - OSTEONECROSIS OF JAW [None]
  - DISCOMFORT [None]
  - OSTEOARTHRITIS [None]
  - SINUS DISORDER [None]
  - DEPRESSION [None]
  - MASTICATION DISORDER [None]
  - EMOTIONAL DISTRESS [None]
  - ANXIETY [None]
  - VISION BLURRED [None]
  - VITAMIN D DEFICIENCY [None]
  - PARAESTHESIA [None]
  - HYPOAESTHESIA [None]
  - GASTROOESOPHAGEAL REFLUX DISEASE [None]
  - DYSPNOEA [None]
  - MUSCULOSKELETAL PAIN [None]
  - COMPRESSION FRACTURE [None]
  - HYPERLIPIDAEMIA [None]
  - TYPE 2 DIABETES MELLITUS [None]
  - PROTEINURIA [None]
  - IMPAIRED GASTRIC EMPTYING [None]
  - CHEST PAIN [None]
  - LIFE EXPECTANCY SHORTENED [None]
  - INJURY [None]
  - OSTEOMYELITIS [None]
  - DIABETIC NEUROPATHY [None]
  - NOCTURIA [None]
  - POLYURIA [None]
  - OSTEOLYSIS [None]
  - SUBCUTANEOUS ABSCESS [None]
  - HAEMOPHILIA [None]
  - MOBILITY DECREASED [None]
  - HEADACHE [None]
